FAERS Safety Report 14017114 (Version 1)
Quarter: 2017Q3

REPORT INFORMATION
  Report Type: Spontaneous
  Country: GB (occurrence: GB)
  Receive Date: 20170927
  Receipt Date: 20170927
  Transmission Date: 20171128
  Serious: Yes (Other)
  Sender: FDA-Public Use
  Company Number: GB-TEVA-808333ACC

PATIENT
  Age: 62 Year
  Sex: Female
  Weight: 58 kg

DRUGS (10)
  1. KETOTIFEN [Concomitant]
     Active Substance: KETOTIFEN
     Dosage: 2 DOSAGE FORMS DAILY;
     Dates: start: 20170310
  2. TERBUTALINE [Concomitant]
     Active Substance: TERBUTALINE
     Route: 055
     Dates: start: 20170810
  3. TIOTROPIUM [Concomitant]
     Active Substance: TIOTROPIUM
     Dosage: 2 DOSAGE FORMS DAILY;
     Route: 055
     Dates: start: 20170831
  4. BUDESONIDE. [Concomitant]
     Active Substance: BUDESONIDE
     Dosage: ONE NEBULE IN 240MLS SALINE VIA NELIMED SINUS
     Route: 045
     Dates: start: 20170310
  5. SALAMOL [Concomitant]
     Active Substance: ALBUTEROL
     Route: 055
     Dates: start: 20170310, end: 20170810
  6. MONTELUKAST [Suspect]
     Active Substance: MONTELUKAST SODIUM
     Dates: start: 20170831
  7. PROCHLORPERAZINE. [Concomitant]
     Active Substance: PROCHLORPERAZINE
     Dosage: USE AS DIRECTED
     Dates: start: 20170310
  8. ZOLMITRIPTAN. [Concomitant]
     Active Substance: ZOLMITRIPTAN
     Dosage: AS DIRECTED
     Dates: start: 20170310
  9. SALBUTAMOL [Concomitant]
     Active Substance: ALBUTEROL
     Route: 055
     Dates: start: 20170810
  10. FOSTAIR [Concomitant]
     Active Substance: BECLOMETHASONE\FORMOTEROL
     Dosage: 4 DOSAGE FORMS DAILY;
     Route: 055
     Dates: start: 20170310

REACTIONS (2)
  - Depressed mood [Recovered/Resolved]
  - Migraine [Recovered/Resolved]

NARRATIVE: CASE EVENT DATE: 20170831
